FAERS Safety Report 8438448-0 (Version None)
Quarter: 2012Q2

REPORT INFORMATION
  Report Type: 
  Country: None (occurrence: None)
  Receive Date: 20120614
  Receipt Date: 20120613
  Transmission Date: 20120825
  Serious: Yes (Hospitalization)
  Sender: FDA-Public Use
  Company Number: GB-AMGEN-GBRSP2012036707

PATIENT
  Age: 73 Year
  Sex: Female

DRUGS (3)
  1. PROLIA [Suspect]
     Indication: PRODUCT USED FOR UNKNOWN INDICATION
     Dosage: UNK
     Dates: start: 20111201
  2. THYROID THERAPY [Concomitant]
  3. CORTICOSTEROID NOS [Concomitant]

REACTIONS (1)
  - PULMONARY EMBOLISM [None]
